FAERS Safety Report 9514985 (Version 2)
Quarter: 2014Q1

REPORT INFORMATION
  Report Type: Spontaneous
  Country: US (occurrence: None)
  Receive Date: 20130305
  Receipt Date: 20140306
  Transmission Date: 20141002
  Serious: Yes (Hospitalization)
  Sender: FDA-Public Use
  Company Number: 163-21880-12121005

PATIENT
  Age: 61 Year
  Sex: Female

DRUGS (11)
  1. REVLIMID (LENALIDOMIDE) (25 MILLIGRAM, CAPSULES) [Suspect]
     Indication: PLASMA CELL MYELOMA
     Dosage: 21 IN 21 D
     Route: 048
     Dates: start: 20091202, end: 2011
  2. ZOMIG ZMT (ZOLMITRIPTAN) [Concomitant]
  3. ZESTRIL (LISINOPRIL) [Concomitant]
  4. XANAX (ALPRAZOLAM) [Concomitant]
  5. VITAMIN D (ERGOCALCIFEROL) [Concomitant]
  6. PROZAC (FLUOXETINE HYDROCHLORIDE) [Concomitant]
  7. PRILOSEC [Concomitant]
  8. LYRICA (PREGABALIN) [Concomitant]
  9. AMBIEN CR (ZOLPIDEM TARTRATE) [Concomitant]
  10. CEFPROZIL [Concomitant]
  11. LASIX (FUROSEMIDE) [Concomitant]

REACTIONS (1)
  - Thrombosis [None]
